FAERS Safety Report 21676466 (Version 2)
Quarter: 2022Q4

REPORT INFORMATION
  Report Type: Spontaneous
  Country: CN (occurrence: CN)
  Receive Date: 20221202
  Receipt Date: 20221219
  Transmission Date: 20230113
  Serious: Yes (Life-Threatening, Hospitalization)
  Sender: FDA-Public Use
  Company Number: CN-MLMSERVICE-20221117-3924616-1

PATIENT
  Age: 3 Year
  Sex: Male

DRUGS (1)
  1. HYDROCORTISONE [Suspect]
     Active Substance: HYDROCORTISONE
     Indication: Adrenal insufficiency
     Dosage: 9.38 MG/M2/D
     Route: 048

REACTIONS (2)
  - Cushingoid [Recovered/Resolved]
  - Condition aggravated [Recovered/Resolved]
